FAERS Safety Report 6768860-7 (Version None)
Quarter: 2010Q2

REPORT INFORMATION
  Report Type: 
  Country: None (occurrence: None)
  Receive Date: 20100611
  Receipt Date: 20100601
  Transmission Date: 20101027
  Serious: Yes (Death)
  Sender: FDA-Public Use
  Company Number: 1000014405

PATIENT
  Sex: Male

DRUGS (1)
  1. ESCITALOPRAM [Suspect]
     Dosage: (10 MG)

REACTIONS (8)
  - COMPLETED SUICIDE [None]
  - DECREASED APPETITE [None]
  - DIZZINESS [None]
  - ERECTILE DYSFUNCTION [None]
  - FUMBLING [None]
  - INAPPROPRIATE AFFECT [None]
  - INSOMNIA [None]
  - NEGATIVE THOUGHTS [None]
